FAERS Safety Report 5710970-7 (Version None)
Quarter: 2008Q2

REPORT INFORMATION
  Report Type: 
  Country: None (occurrence: None)
  Receive Date: 20080421
  Receipt Date: 20080319
  Transmission Date: 20081010
  Serious: No
  Sender: FDA-Public Use
  Company Number: US-BAYER-200817504NA

PATIENT
  Sex: Male

DRUGS (2)
  1. AVELOX [Suspect]
     Indication: DRUG USE FOR UNKNOWN INDICATION
     Route: 048
  2. CLARINEX [Concomitant]

REACTIONS (3)
  - HEART RATE IRREGULAR [None]
  - RESPIRATORY DISORDER [None]
  - SKIN BURNING SENSATION [None]
